FAERS Safety Report 6418154-4 (Version None)
Quarter: 2009Q4

REPORT INFORMATION
  Report Type: 
  Country: None (occurrence: None)
  Receive Date: 20091028
  Receipt Date: 20091022
  Transmission Date: 20100525
  Serious: Yes (Other)
  Sender: FDA-Public Use
  Company Number: US-ELI_LILLY_AND_COMPANY-US200910005902

PATIENT
  Sex: Male

DRUGS (6)
  1. HUMULIN N [Suspect]
     Dosage: UNK, UNK
     Dates: end: 20091001
  2. HUMULIN R [Suspect]
     Dosage: UNK, UNK
     Dates: end: 20091001
  3. HUMALOG MIX 75/25 [Suspect]
  4. FLOMAX [Concomitant]
  5. GEMFIBROZIL [Concomitant]
  6. LEVOTHYROXINE SODIUM [Concomitant]
     Indication: THYROID DISORDER

REACTIONS (5)
  - BLINDNESS [None]
  - DEVICE MISUSE [None]
  - EXPIRED DRUG ADMINISTERED [None]
  - MACULAR DEGENERATION [None]
  - THYROID DISORDER [None]
